FAERS Safety Report 8892952 (Version 1)
Quarter: 2012Q4

REPORT INFORMATION
  Report Type: 
  Country: US (occurrence: US)
  Receive Date: 20121107
  Receipt Date: 20121107
  Transmission Date: 20130627
  Serious: No
  Sender: FDA-Public Use
  Company Number: US-AMGEN-USASP2011054349

PATIENT
  Age: 10 Year
  Sex: Female
  Weight: 29.93 kg

DRUGS (4)
  1. ENBREL [Suspect]
     Indication: PRODUCT USED FOR UNKNOWN INDICATION
     Dosage: 25 mg, qwk
     Route: 058
  2. FLUOXETINE [Concomitant]
     Dosage: 10 mg, UNK
  3. FOLIC ACID [Concomitant]
     Dosage: 1 mg, UNK
  4. VITAMIN D3 [Concomitant]
     Dosage: 1000 IU, UNK

REACTIONS (3)
  - Injection site swelling [Recovered/Resolved]
  - Injection site reaction [Recovered/Resolved]
  - Injection site erythema [Recovered/Resolved]
